FAERS Safety Report 8219956-4 (Version None)
Quarter: 2012Q1

REPORT INFORMATION
  Report Type: 
  Country: None (occurrence: None)
  Receive Date: 20120319
  Receipt Date: 20120314
  Transmission Date: 20120608
  Serious: Yes (Life-Threatening, Hospitalization)
  Sender: FDA-Public Use
  Company Number: DE-ROCHE-1018683

PATIENT
  Age: 76 Year
  Sex: Female
  Weight: 74.4 kg

DRUGS (26)
  1. ZOLPIDEM [Concomitant]
  2. VEMURAFENIB [Suspect]
     Dosage: REDUCED DOSE TO 50 %
     Route: 048
     Dates: start: 20111222
  3. PENTAERYTHRITOL TETRANITRATE [Concomitant]
  4. FALITHROM [Concomitant]
  5. ACTRAPHANE HM 30/70 [Concomitant]
  6. ASPIRIN [Concomitant]
     Dates: start: 20101001
  7. BISOPROLOL FUMARATE [Concomitant]
     Dates: start: 20111201
  8. ACTRAPID [Concomitant]
     Dosage: 20 IU/ML
     Dates: start: 20101001
  9. MARCUMAR [Concomitant]
     Dosage: AS NEEDED
     Dates: start: 20101001
  10. TORSEMIDE [Concomitant]
     Dates: start: 20101001
  11. DIGITOXIN INJ [Concomitant]
     Dates: start: 20101031
  12. DIGITOXIN INJ [Concomitant]
  13. EZETIMIBE [Concomitant]
     Dosage: 10/20 MG
     Dates: start: 20101031
  14. PANTOPRAZOLE [Concomitant]
     Dates: start: 20111201
  15. RAMIPRIL [Concomitant]
     Dates: start: 20111201
  16. XIPAMID [Concomitant]
  17. LEVEMIR [Concomitant]
     Dates: start: 20111201
  18. VEMURAFENIB [Suspect]
     Indication: METASTATIC MALIGNANT MELANOMA
     Dosage: LAST DOSE PRIOR TO SAE:30 NOV 2011
     Route: 048
     Dates: start: 20111122, end: 20111212
  19. CONCOR 5 [Concomitant]
  20. TORSEMIDE [Concomitant]
  21. SPIRONOLACTONE [Concomitant]
     Dates: start: 20101001
  22. SPIRONOLACTONE [Concomitant]
  23. PENTAERYTHRITOL TETRANITRATE [Concomitant]
     Dates: start: 20101001
  24. VEMURAFENIB [Suspect]
     Dates: end: 20111224
  25. PERINDOPRIL ERBUMINE [Concomitant]
  26. EZETIMIBE [Concomitant]
     Dosage: INEGY 10/40

REACTIONS (4)
  - PERICARDIAL HAEMORRHAGE [None]
  - PNEUMONIA [None]
  - GENERAL PHYSICAL HEALTH DETERIORATION [None]
  - URINARY TRACT INFECTION [None]
